FAERS Safety Report 22182438 (Version 1)
Quarter: 2023Q2

REPORT INFORMATION
  Report Type: Spontaneous
  Country: GB (occurrence: None)
  Receive Date: 20230406
  Receipt Date: 20230406
  Transmission Date: 20230722
  Serious: Yes (Hospitalization, Other)
  Sender: FDA-Public Use
  Company Number: 2023A076357

PATIENT

DRUGS (7)
  1. OMEPRAZOLE [Suspect]
     Active Substance: OMEPRAZOLE
     Dosage: 20MG OM (EVERY MORNING)
  2. LISINOPRIL [Suspect]
     Active Substance: LISINOPRIL
     Dosage: 5MG OM (EVERY MORNING)
  3. SERTRALINE [Suspect]
     Active Substance: SERTRALINE HYDROCHLORIDE
     Dosage: STARTED 5 DAYS PREVIOUS
     Dates: start: 20230314
  4. BENDROFLUMETHIAZIDE [Suspect]
     Active Substance: BENDROFLUMETHIAZIDE
  5. ATORVASTATIN [Suspect]
     Active Substance: ATORVASTATIN
  6. DIAZEPAM [Suspect]
     Active Substance: DIAZEPAM
  7. MEMANTINE [Suspect]
     Active Substance: MEMANTINE

REACTIONS (1)
  - Inappropriate antidiuretic hormone secretion [Recovering/Resolving]

NARRATIVE: CASE EVENT DATE: 20230320
